FAERS Safety Report 20042288 (Version 6)
Quarter: 2022Q1

REPORT INFORMATION
  Report Type: Report from Study
  Country: JP (occurrence: JP)
  Receive Date: 20211108
  Receipt Date: 20220106
  Transmission Date: 20220423
  Serious: Yes (Hospitalization, Other)
  Sender: FDA-Public Use
  Company Number: JP-BRISTOL-MYERS SQUIBB COMPANY-BMS-2021-096250

PATIENT
  Age: 49 Year
  Sex: Male
  Weight: 60.7 kg

DRUGS (12)
  1. NIVOLUMAB [Suspect]
     Active Substance: NIVOLUMAB
     Indication: Non-small cell lung cancer recurrent
     Dosage: 360 MILLIGRAM
     Route: 041
     Dates: start: 20210317, end: 20210317
  2. NIVOLUMAB [Suspect]
     Active Substance: NIVOLUMAB
     Dosage: 360 MILLIGRAM
     Route: 041
     Dates: start: 20210407, end: 20210407
  3. NIVOLUMAB [Suspect]
     Active Substance: NIVOLUMAB
     Dosage: 360 MILLIGRAM
     Route: 041
     Dates: start: 20210501, end: 20210501
  4. NIVOLUMAB [Suspect]
     Active Substance: NIVOLUMAB
     Dosage: 360 MILLIGRAM
     Route: 041
     Dates: start: 20210520, end: 20210520
  5. NIVOLUMAB [Suspect]
     Active Substance: NIVOLUMAB
     Dosage: 360 MILLIGRAM
     Route: 041
     Dates: start: 20210610, end: 20210610
  6. IPILIMUMAB [Suspect]
     Active Substance: IPILIMUMAB
     Indication: Non-small cell lung cancer recurrent
     Dosage: 60 MILLIGRAM
     Route: 041
     Dates: start: 20210317, end: 20210317
  7. IPILIMUMAB [Suspect]
     Active Substance: IPILIMUMAB
     Dosage: 57.5 MILLIGRAM
     Route: 041
     Dates: start: 20210501, end: 20210501
  8. IPILIMUMAB [Suspect]
     Active Substance: IPILIMUMAB
     Dosage: 54.9 MILLIGRAM
     Route: 041
     Dates: start: 20210610, end: 20210610
  9. CARBOPLATIN [Suspect]
     Active Substance: CARBOPLATIN
     Indication: Non-small cell lung cancer recurrent
     Dosage: 880 MILLIGRAM
     Route: 065
     Dates: start: 20210317, end: 20210317
  10. CARBOPLATIN [Suspect]
     Active Substance: CARBOPLATIN
     Dosage: 739 MILLIGRAM
     Route: 065
     Dates: start: 20210407, end: 20210407
  11. PEMETREXED [Suspect]
     Active Substance: PEMETREXED
     Indication: Non-small cell lung cancer recurrent
     Dosage: 858 MILLIGRAM
     Route: 065
     Dates: start: 20210317, end: 20210317
  12. PEMETREXED [Suspect]
     Active Substance: PEMETREXED
     Dosage: 813 MILLIGRAM
     Route: 065
     Dates: start: 20210407, end: 20210407

REACTIONS (3)
  - Haemophagocytic lymphohistiocytosis [Recovering/Resolving]
  - Malignant neoplasm progression [Unknown]
  - Pericarditis malignant [Recovering/Resolving]

NARRATIVE: CASE EVENT DATE: 20210625
